FAERS Safety Report 4754245-1 (Version None)
Quarter: 2005Q3

REPORT INFORMATION
  Report Type: 
  Country: None (occurrence: None)
  Receive Date: 20050829
  Receipt Date: 20050817
  Transmission Date: 20060218
  Serious: Yes (Hospitalization)
  Sender: FDA-Public Use
  Company Number: US-JNJFOC-20050503200

PATIENT
  Sex: Female

DRUGS (16)
  1. TOPAMAX [Suspect]
     Indication: DEPRESSION
     Route: 048
  2. ZOLOFT [Concomitant]
     Indication: DEPRESSION
     Route: 048
  3. LEVOTHYROXINE [Concomitant]
     Indication: HYPOTHYROIDISM
     Route: 048
  4. CALCIUM GLUCONATE [Concomitant]
  5. VITAMIN SUPPLEMENTS [Concomitant]
     Indication: NUTRITIONAL SUPPORT
  6. VITAMIN D [Concomitant]
     Indication: OSTEOPENIA
     Dosage: DOSE UNSPECIFIED
     Route: 048
  7. IRON [Concomitant]
     Indication: IRON DEFICIENCY
     Dosage: DOSE UNSPECIFIED
     Route: 065
  8. DOVONEX [Concomitant]
     Indication: PSORIASIS
     Route: 061
  9. MULTI-VITAMIN [Concomitant]
     Route: 065
  10. MULTI-VITAMIN [Concomitant]
     Route: 065
  11. MULTI-VITAMIN [Concomitant]
     Route: 065
  12. MULTI-VITAMIN [Concomitant]
     Route: 065
  13. MULTI-VITAMIN [Concomitant]
     Route: 065
  14. MULTI-VITAMIN [Concomitant]
     Route: 065
  15. MULTI-VITAMIN [Concomitant]
     Route: 065
  16. MULTI-VITAMIN [Concomitant]
     Indication: DRUG USE FOR UNKNOWN INDICATION
     Route: 065

REACTIONS (4)
  - BLOOD CREATINE PHOSPHOKINASE INCREASED [None]
  - MUSCLE ATROPHY [None]
  - MUSCULAR WEAKNESS [None]
  - MYALGIA [None]
